FAERS Safety Report 5025397-3 (Version None)
Quarter: 2006Q2

REPORT INFORMATION
  Report Type: 
  Country: None (occurrence: None)
  Receive Date: 20060608
  Receipt Date: 20060526
  Transmission Date: 20061013
  Serious: Yes (Hospitalization)
  Sender: FDA-Public Use
  Company Number: 20063002

PATIENT
  Sex: Male

DRUGS (2)
  1. LIORESAL [Suspect]
     Indication: MUSCLE SPASTICITY
     Dosage: MCG, DAILY, INTRATHECAL
     Route: 037
  2. ANTICOAGULANTS [Concomitant]

REACTIONS (4)
  - DEEP VEIN THROMBOSIS [None]
  - INTRACRANIAL HYPOTENSION [None]
  - SOMNOLENCE [None]
  - SUBDURAL HAEMATOMA [None]
